FAERS Safety Report 15941344 (Version 3)
Quarter: 2020Q3

REPORT INFORMATION
  Report Type: Spontaneous
  Country: US (occurrence: US)
  Receive Date: 20190208
  Receipt Date: 20200811
  Transmission Date: 20201102
  Serious: Yes (Disabling, Other)
  Sender: FDA-Public Use
  Company Number: US-MYLANLABS-2019M1010731

PATIENT
  Age: 73 Year
  Sex: Male
  Weight: 162 kg

DRUGS (19)
  1. PROCHLORPERAZINE MALEATE. [Concomitant]
     Active Substance: PROCHLORPERAZINE MALEATE
     Dosage: UNK
  2. SODIUM CHLORIDE. [Concomitant]
     Active Substance: SODIUM CHLORIDE
     Dosage: UNK
  3. ASPIRIN                            /00002701/ [Concomitant]
     Active Substance: ASPIRIN
     Indication: CARDIAC DISORDER
     Dosage: 81 MILLIGRAM, QD
     Dates: start: 2010
  4. DEXTROSE. [Concomitant]
     Active Substance: DEXTROSE
     Dosage: UNK (250)
     Route: 042
  5. HEPARIN LOCK FLUSH [Concomitant]
     Active Substance: HEPARIN SODIUM
     Dosage: UNK, ONCE
     Route: 042
  6. VALSARTAN/HYDROCHLOROTHIAZIDE [Suspect]
     Active Substance: HYDROCHLOROTHIAZIDE\VALSARTAN
     Indication: HYPERTENSION
     Dosage: UNK (160/12.5 MG) (AUROBINDO)
     Dates: start: 20140516, end: 20150212
  7. ONDANSETRON HCL [Concomitant]
     Active Substance: ONDANSETRON HYDROCHLORIDE
     Dosage: UNK
  8. PALONOSETRON HCL [Concomitant]
     Active Substance: PALONOSETRON HYDROCHLORIDE
     Dosage: 0.25 MILLIGRAM, ONCE (ONCE PUSH OVER 30 SECONDS)
     Route: 042
  9. VALSARTAN AND HYDROCHLOROTHIAZIDE TABLETS, USP [Suspect]
     Active Substance: HYDROCHLOROTHIAZIDE\VALSARTAN
     Indication: HYPERTENSION
     Dosage: UNK (DOSE: 160/12.5 MG)
     Dates: start: 20140130, end: 20140510
  10. DEXAMETHASONE SODIUM PHOSPHATE. [Concomitant]
     Active Substance: DEXAMETHASONE SODIUM PHOSPHATE
     Dosage: 12 MILLIGRAM (0.9NS 100 ML (1))
     Route: 042
  11. PEGFILGRASTIM [Concomitant]
     Active Substance: PEGFILGRASTIM
     Dosage: 6 MILLIGRAM, QD
     Route: 058
  12. EMEND [Concomitant]
     Active Substance: APREPITANT
     Dosage: 150 MILLIGRAM (0.9NS 100 ML (4))
     Route: 042
  13. OXALIPLATIN. [Concomitant]
     Active Substance: OXALIPLATIN
     Dosage: 160 MILLIGRAM, ONCE (OVER 2 HOURS IN G5W 250 ML (2))
     Route: 042
  14. LEUCOVORIN CALCIUM. [Concomitant]
     Active Substance: LEUCOVORIN CALCIUM
     Dosage: 750 MILLIGRAM, ONCE (OVER 2 HOURS IN G5W 250 ML (3))
     Route: 042
  15. ONDANSETRON [Concomitant]
     Active Substance: ONDANSETRON
     Dosage: UNK
  16. VALSARTAN/HYDROCHLOROTHIAZIDE [Concomitant]
     Active Substance: HYDROCHLOROTHIAZIDE\VALSARTAN
     Dosage: UNK UNK, QD (160?12.5 MG)
     Route: 048
  17. VALSARTAN AND HYDROCHLOROTHIAZIDE TABLETS, USP [Suspect]
     Active Substance: HYDROCHLOROTHIAZIDE\VALSARTAN
     Dosage: UNK
     Dates: start: 201401, end: 201810
  18. VALSARTAN/HYDROCHLOROTHIAZIDE [Suspect]
     Active Substance: HYDROCHLOROTHIAZIDE\VALSARTAN
     Indication: HYPERTENSION
     Dosage: UNK (160/12.5 MG)
     Dates: start: 20150129, end: 20180602
  19. FLUOROURACIL. [Concomitant]
     Active Substance: FLUOROURACIL
     Dosage: 4490 MILLIGRAM, ONCE (CONTINUOUS OVER 46 HOURS)
     Route: 042

REACTIONS (2)
  - Colon cancer stage III [Unknown]
  - Recalled product administered [Unknown]

NARRATIVE: CASE EVENT DATE: 20170922
